FAERS Safety Report 6465018-6 (Version None)
Quarter: 2009Q4

REPORT INFORMATION
  Report Type: 
  Country: None (occurrence: None)
  Receive Date: 20091123
  Receipt Date: 20091112
  Transmission Date: 20100525
  Serious: Yes (Other)
  Sender: FDA-Public Use
  Company Number: 2009-04745

PATIENT
  Age: 47 Year
  Sex: Male

DRUGS (2)
  1. VELCADE [Suspect]
     Indication: MALIGNANT MELANOMA
     Dosage: 2 MG, INTRAVENOUS
     Route: 042
  2. INTERFERON [Concomitant]

REACTIONS (2)
  - DIARRHOEA [None]
  - OFF LABEL USE [None]
